FAERS Safety Report 7027056-4 (Version None)
Quarter: 2010Q4

REPORT INFORMATION
  Report Type: 
  Country: None (occurrence: None)
  Receive Date: 20101004
  Receipt Date: 20100922
  Transmission Date: 20110411
  Serious: Yes (Life-Threatening, Other)
  Sender: FDA-Public Use
  Company Number: US-JNJFOC-20100800959

PATIENT
  Sex: Male
  Weight: 63.96 kg

DRUGS (4)
  1. REMICADE [Suspect]
     Indication: CROHN'S DISEASE
     Route: 042
  2. REMICADE [Suspect]
     Route: 042
  3. OXALIPLATIN [Suspect]
     Indication: CHEMOTHERAPY
  4. ASACOL [Concomitant]
     Indication: CROHN'S DISEASE
     Route: 042

REACTIONS (4)
  - COLON CANCER METASTATIC [None]
  - COLON CANCER STAGE IV [None]
  - DIZZINESS [None]
  - NEUROPATHY PERIPHERAL [None]
